FAERS Safety Report 7112403-5 (Version None)
Quarter: 2010Q4

REPORT INFORMATION
  Report Type: 
  Country: None (occurrence: None)
  Receive Date: 20101119
  Receipt Date: 20101019
  Transmission Date: 20110411
  Serious: No
  Sender: FDA-Public Use
  Company Number: A0887604A

PATIENT
  Age: 78 Year
  Sex: Male

DRUGS (2)
  1. AVODART [Suspect]
     Indication: BENIGN PROSTATIC HYPERPLASIA
     Dosage: .5MG PER DAY
     Route: 048
     Dates: start: 20090901
  2. LIPITOR [Concomitant]

REACTIONS (5)
  - COUGH [None]
  - DYSPHONIA [None]
  - FATIGUE [None]
  - PRURITUS [None]
  - THROAT IRRITATION [None]
